FAERS Safety Report 4994576-3 (Version None)
Quarter: 2006Q2

REPORT INFORMATION
  Report Type: 
  Country: None (occurrence: None)
  Receive Date: 20060505
  Receipt Date: 20050422
  Transmission Date: 20061013
  Serious: Yes (Hospitalization)
  Sender: FDA-Public Use
  Company Number: US-MERCK-0504USA04189

PATIENT
  Age: 80 Year
  Sex: Male
  Weight: 77 kg

DRUGS (1)
  1. VIOXX [Suspect]
     Indication: ARTHRALGIA
     Route: 048
     Dates: start: 19990101, end: 20030101

REACTIONS (20)
  - ARTERIAL OCCLUSIVE DISEASE [None]
  - ASTHMA [None]
  - BENIGN PROSTATIC HYPERPLASIA [None]
  - BITE [None]
  - BLOOD GLUCOSE INCREASED [None]
  - BRONCHITIS ACUTE [None]
  - BRONCHITIS CHRONIC [None]
  - CARDIAC DISORDER [None]
  - CELLULITIS [None]
  - DIZZINESS [None]
  - FATIGUE [None]
  - HYPERTENSION [None]
  - INGUINAL HERNIA [None]
  - INTERVERTEBRAL DISC DEGENERATION [None]
  - PLEURAL EFFUSION [None]
  - PNEUMONIA [None]
  - PROSTATISM [None]
  - SPINAL OSTEOARTHRITIS [None]
  - VENTRICULAR HYPERTROPHY [None]
  - WEIGHT DECREASED [None]
